FAERS Safety Report 8774073 (Version 10)
Quarter: 2013Q2

REPORT INFORMATION
  Report Type: Spontaneous
  Country: US (occurrence: US)
  Receive Date: 20120908
  Receipt Date: 20130614
  Transmission Date: 20140414
  Serious: Yes (Hospitalization, Disabling, Other)
  Sender: FDA-Public Use
  Company Number: US-009507513-1208USA011469

PATIENT
  Sex: Female
  Weight: 48.98 kg

DRUGS (10)
  1. FOSAMAX [Suspect]
     Indication: OSTEOPENIA
     Dosage: UNK
     Route: 048
     Dates: start: 20070319, end: 201009
  2. FOSAMAX [Suspect]
     Indication: OSTEOPOROSIS
  3. FOSAMAX [Suspect]
     Indication: OSTEOPENIA
     Dosage: 70 MG, UNK
     Route: 048
     Dates: start: 20100731, end: 201012
  4. FOSAMAX [Suspect]
     Indication: OSTEOPOROSIS
  5. ALENDRONATE SODIUM [Suspect]
     Dosage: 70 MG, QD
     Route: 048
     Dates: start: 20090309, end: 200908
  6. ALENDRONATE SODIUM [Suspect]
     Dosage: 70 MG, UNK
     Route: 048
     Dates: start: 20091022
  7. ALENDRONATE SODIUM [Suspect]
     Dosage: 70 MG, QD
     Route: 048
     Dates: start: 20100416
  8. PREMARIN [Concomitant]
     Indication: OSTEOPENIA
  9. PREMARIN [Concomitant]
     Indication: MENOPAUSAL SYMPTOMS
  10. BONIVA [Suspect]

REACTIONS (60)
  - Bone loss [Not Recovered/Not Resolved]
  - Mental disorder [Recovered/Resolved]
  - Abscess jaw [Recovered/Resolved]
  - Hyponatraemia [Recovered/Resolved]
  - White blood cell count increased [Unknown]
  - Hypokalaemia [Recovered/Resolved]
  - Weight decreased [Unknown]
  - Osteomyelitis [Recovered/Resolved]
  - Osteonecrosis of jaw [Recovered/Resolved]
  - Osteonecrosis of jaw [Unknown]
  - Herpes zoster [Unknown]
  - Dementia [Unknown]
  - Sinus operation [Unknown]
  - Dental implantation [Unknown]
  - Tooth infection [Unknown]
  - Fistula discharge [Unknown]
  - Depression [Not Recovered/Not Resolved]
  - Anxiety [Unknown]
  - Temporomandibular joint syndrome [Unknown]
  - Fistula [Recovered/Resolved]
  - Macular degeneration [Unknown]
  - Glaucoma [Unknown]
  - Memory impairment [Unknown]
  - Meniscus removal [Unknown]
  - Abscess [Unknown]
  - Migraine [Unknown]
  - Hypothyroidism [Unknown]
  - Osteomyelitis [Unknown]
  - Blood cholesterol increased [Unknown]
  - Arthritis [Unknown]
  - Loose tooth [Unknown]
  - Dental caries [Unknown]
  - Periodontal disease [Unknown]
  - Sinusitis [Unknown]
  - Fungal infection [Unknown]
  - Toothache [Unknown]
  - Insomnia [Unknown]
  - Herpes simplex [Unknown]
  - Excessive granulation tissue [Unknown]
  - Gingival abscess [Unknown]
  - Pain [Not Recovered/Not Resolved]
  - Stress [Unknown]
  - Sinusitis [Recovering/Resolving]
  - Urinary incontinence [Unknown]
  - Cellulitis [Unknown]
  - Facial pain [Not Recovered/Not Resolved]
  - Memory impairment [Unknown]
  - Anxiety [Recovering/Resolving]
  - Delusion [Unknown]
  - Back pain [Unknown]
  - Gastrooesophageal reflux disease [Unknown]
  - Hypersensitivity [Not Recovered/Not Resolved]
  - Abdominal discomfort [Unknown]
  - Dyspepsia [Unknown]
  - Headache [Unknown]
  - Mouth ulceration [Unknown]
  - Drug ineffective [Unknown]
  - Neck pain [Unknown]
  - Headache [Not Recovered/Not Resolved]
  - Nausea [Unknown]
